FAERS Safety Report 14254913 (Version 1)
Quarter: 2017Q4

REPORT INFORMATION
  Report Type: Spontaneous
  Country: US (occurrence: US)
  Receive Date: 20171206
  Receipt Date: 20171206
  Transmission Date: 20180321
  Serious: Yes (Hospitalization)
  Sender: FDA-Public Use
  Company Number: US-SHIRE-US201731752

PATIENT
  Sex: Male
  Weight: 10.3 kg

DRUGS (2)
  1. LMX                                /00033401/ [Concomitant]
     Indication: PRODUCT USED FOR UNKNOWN INDICATION
  2. CUVITRU [Suspect]
     Active Substance: HUMAN IMMUNOGLOBULIN G
     Indication: PRIMARY IMMUNODEFICIENCY SYNDROME
     Dosage: 3 MG, 1X/2WKS
     Route: 058
     Dates: start: 20171124

REACTIONS (3)
  - Full blood count decreased [Unknown]
  - Hiatus hernia [Unknown]
  - Pyrexia [Unknown]
